FAERS Safety Report 20556547 (Version 1)
Quarter: 2022Q1

REPORT INFORMATION
  Report Type: Spontaneous
  Country: US (occurrence: US)
  Receive Date: 20220307
  Receipt Date: 20220307
  Transmission Date: 20220423
  Serious: No
  Sender: FDA-Public Use
  Company Number: US-JNJFOC-20220258472

PATIENT
  Sex: Female
  Weight: 51.756 kg

DRUGS (2)
  1. SIMPONI ARIA [Suspect]
     Active Substance: GOLIMUMAB
     Indication: Ankylosing spondylitis
     Route: 042
     Dates: start: 202008, end: 20210520
  2. METHOTREXATE [Concomitant]
     Active Substance: METHOTREXATE
     Dates: start: 202011, end: 202112

REACTIONS (3)
  - Blood test abnormal [Unknown]
  - Off label use [Unknown]
  - Incorrect dose administered [Unknown]
